FAERS Safety Report 23959646 (Version 4)
Quarter: 2025Q3

REPORT INFORMATION
  Report Type: Spontaneous
  Country: JP (occurrence: JP)
  Receive Date: 20240611
  Receipt Date: 20250925
  Transmission Date: 20251021
  Serious: Yes (Hospitalization, Other)
  Sender: NOVARTIS
  Company Number: JP-002147023-NVSJ2024JP006832

PATIENT
  Age: 52 Year
  Sex: Male
  Weight: 68.8 kg

DRUGS (3)
  1. GILENYA [Suspect]
     Active Substance: FINGOLIMOD HYDROCHLORIDE
     Indication: Multiple sclerosis
     Route: 048
     Dates: start: 201401, end: 202401
  2. KESIMPTA [Suspect]
     Active Substance: OFATUMUMAB
     Indication: Multiple sclerosis
     Dosage: 20 MG, QMO
     Route: 058
     Dates: start: 20240206
  3. KESIMPTA [Suspect]
     Active Substance: OFATUMUMAB
     Indication: Multiple sclerosis relapse prophylaxis

REACTIONS (15)
  - Optic neuritis [Recovered/Resolved]
  - Hemianopia [Recovered/Resolved]
  - Visual acuity reduced [Recovering/Resolving]
  - Optic neuritis [Recovered/Resolved]
  - Eye pain [Recovering/Resolving]
  - Pseudopapilloedema [Recovering/Resolving]
  - Optic neuritis [Recovered/Resolved]
  - Blindness transient [Recovering/Resolving]
  - Abnormal sensation in eye [Recovered/Resolved]
  - Optic neuritis [Recovered/Resolved]
  - Visual field defect [Recovered/Resolved]
  - Eye pain [Recovered/Resolved]
  - Papilloedema [Recovered/Resolved]
  - Disease recurrence [Recovered/Resolved]
  - Rebound effect [Recovering/Resolving]

NARRATIVE: CASE EVENT DATE: 20240401
